FAERS Safety Report 5809145-2 (Version None)
Quarter: 2008Q3

REPORT INFORMATION
  Report Type: 
  Country: None (occurrence: None)
  Receive Date: 20080714
  Receipt Date: 20080702
  Transmission Date: 20090109
  Serious: Yes (Life-Threatening, Hospitalization)
  Sender: FDA-Public Use
  Company Number: ES-PFIZER INC-2008045169

PATIENT
  Age: 75 Year
  Sex: Female

DRUGS (6)
  1. ALDACTONE [Suspect]
     Indication: HYPERTENSION
     Route: 048
  2. DIGOXIN [Interacting]
     Indication: ATRIAL FIBRILLATION
     Route: 048
     Dates: start: 20080310, end: 20080405
  3. CARVEDILOL [Interacting]
     Indication: HYPERTENSION
     Dosage: DAILY DOSE:25MG
     Route: 048
  4. FUROSEMIDE [Interacting]
     Indication: CARDIAC FAILURE CHRONIC
     Route: 048
  5. COZAAR [Concomitant]
     Indication: HYPERTENSION
     Dosage: DAILY DOSE:100MG
     Route: 048
  6. ISCOVER [Concomitant]
     Indication: ATRIAL FIBRILLATION
     Dosage: DAILY DOSE:75MG
     Route: 048

REACTIONS (5)
  - BRADYCARDIA [None]
  - DRUG INTERACTION [None]
  - HYPERKALAEMIA [None]
  - RENAL FAILURE ACUTE [None]
  - THERAPEUTIC AGENT TOXICITY [None]
